FAERS Safety Report 10520923 (Version 1)
Quarter: 2014Q4

REPORT INFORMATION
  Report Type: Spontaneous
  Country: CH (occurrence: CH)
  Receive Date: 20141016
  Receipt Date: 20141016
  Transmission Date: 20150528
  Serious: Yes (Hospitalization)
  Sender: FDA-Public Use
  Company Number: CH-ABBVIE-14K-151-1294887-00

PATIENT
  Age: 70 Year
  Sex: Female

DRUGS (11)
  1. VITAMIN D3 [Concomitant]
     Active Substance: CHOLECALCIFEROL
     Indication: PRODUCT USED FOR UNKNOWN INDICATION
     Dosage: NOON: 1 TIMES 10 DROPS
     Route: 048
  2. LUDIOMIL [Concomitant]
     Active Substance: MAPROTILINE HYDROCHLORIDE
     Indication: PRODUCT USED FOR UNKNOWN INDICATION
     Dosage: AM: 2TIMES 25MG +PM: 3TIMES 25MG
     Route: 048
  3. BETASERC [Suspect]
     Active Substance: BETAHISTINE
     Indication: VERTIGO POSITIONAL
     Route: 048
     Dates: start: 20140503, end: 20140504
  4. LAXIPLANT SOFT [Concomitant]
     Indication: PRODUCT USED FOR UNKNOWN INDICATION
     Dosage: DOSAGE FORM = SPOON
     Route: 048
  5. SORTIS [Concomitant]
     Active Substance: ATORVASTATIN
     Indication: PRODUCT USED FOR UNKNOWN INDICATION
     Dosage: AM: 1 TIMES 40MG
     Route: 048
  6. ESTRADIOL. [Concomitant]
     Active Substance: ESTRADIOL
     Indication: PRODUCT USED FOR UNKNOWN INDICATION
     Dosage: AM: 1 MG
     Route: 048
  7. HUMIRA [Suspect]
     Active Substance: ADALIMUMAB
     Indication: PRODUCT USED FOR UNKNOWN INDICATION
     Route: 065
  8. PREDNISOLON [Concomitant]
     Active Substance: PREDNISOLONE
     Indication: PRODUCT USED FOR UNKNOWN INDICATION
     Dosage: AM: 1.5 TIMES 5MG
     Route: 048
  9. CALCIUM SANDOZ [Concomitant]
     Active Substance: CALCIUM
     Indication: PRODUCT USED FOR UNKNOWN INDICATION
     Dosage: NOON: 1 TIMES 1000MG
     Route: 048
  10. ARAVA [Concomitant]
     Active Substance: LEFLUNOMIDE
     Indication: PRODUCT USED FOR UNKNOWN INDICATION
     Dosage: NOON: 1 TIMES 20MG
     Route: 048
  11. PANTO GAS [Concomitant]
     Indication: PRODUCT USED FOR UNKNOWN INDICATION
     Dosage: NOON: 3 TIMES 1 DOSE
     Route: 048

REACTIONS (3)
  - Urinary incontinence [Recovered/Resolved]
  - Vertigo [Unknown]
  - Neck pain [Unknown]

NARRATIVE: CASE EVENT DATE: 201404
